FAERS Safety Report 18565553 (Version 1)
Quarter: 2020Q4

REPORT INFORMATION
  Report Type: Spontaneous
  Country: FR (occurrence: FR)
  Receive Date: 20201201
  Receipt Date: 20201201
  Transmission Date: 20210114
  Serious: Yes (Other)
  Sender: FDA-Public Use
  Company Number: FR-TEVA-2020-FR-1851181

PATIENT
  Age: 83 Year
  Sex: Male
  Weight: 97 kg

DRUGS (16)
  1. RILMENIDINE [Concomitant]
     Active Substance: RILMENIDINE
  2. CRESTOR [Concomitant]
     Active Substance: ROSUVASTATIN CALCIUM
  3. CLINDAMYCINE (CHLORHYDRATE DE) [Suspect]
     Active Substance: CLINDAMYCIN
     Indication: OSTEITIS
     Dosage: 2 CAPSULES 3 / D
     Route: 048
     Dates: start: 20200909
  4. ALPRESS [Concomitant]
     Active Substance: PRAZOSIN
  5. CALCIPARINE [Concomitant]
     Active Substance: HEPARIN CALCIUM
  6. SPECIAFOLDINE [Concomitant]
     Active Substance: FOLIC ACID
  7. LEVOTHYROX [Concomitant]
     Active Substance: LEVOTHYROXINE
  8. AMLOR [Concomitant]
     Active Substance: AMLODIPINE BESYLATE
  9. ALLOPURINOL. [Concomitant]
     Active Substance: ALLOPURINOL
  10. EUPRESSYL [Concomitant]
     Active Substance: URAPIDIL
  11. ARANESP [Concomitant]
     Active Substance: DARBEPOETIN ALFA
  12. FUROSEMIDE. [Concomitant]
     Active Substance: FUROSEMIDE
  13. BISOPROLOL (HEMIFUMARATE DE) [Concomitant]
     Active Substance: BISOPROLOL FUMARATE
  14. ZYMAD [Concomitant]
     Active Substance: CHOLECALCIFEROL
  15. CIPROFLOXACINE [Suspect]
     Active Substance: CIPROFLOXACIN
     Indication: OSTEITIS
     Route: 042
     Dates: start: 20200909
  16. PIPERACILLINE SODIQUE [Suspect]
     Active Substance: PIPERACILLIN
     Indication: OSTEITIS
     Route: 042
     Dates: start: 20200909, end: 20200914

REACTIONS (2)
  - Pruritus [Not Recovered/Not Resolved]
  - Rash maculo-papular [Not Recovered/Not Resolved]

NARRATIVE: CASE EVENT DATE: 20200930
